FAERS Safety Report 7968872-1 (Version None)
Quarter: 2011Q4

REPORT INFORMATION
  Report Type: 
  Country: None (occurrence: None)
  Receive Date: 20111209
  Receipt Date: 20111130
  Transmission Date: 20120403
  Serious: Yes (Other)
  Sender: FDA-Public Use
  Company Number: US-ABBOTT-08P-163-0485368-00

PATIENT
  Sex: Female
  Weight: 95.34 kg

DRUGS (7)
  1. CALCIUM [Concomitant]
     Indication: BONE DISORDER
  2. FISH OIL [Concomitant]
     Indication: PRODUCT USED FOR UNKNOWN INDICATION
  3. LEVOTHYROXINE SODIUM [Suspect]
     Indication: AUTOIMMUNE THYROIDITIS
     Dosage: MYLAND PHARMACEUTICALS, ADJUSTED TO THYROID.
     Route: 048
     Dates: start: 20090401
  4. ENZYME SUPPLEMENT [Concomitant]
     Indication: PRODUCT USED FOR UNKNOWN INDICATION
     Dosage: DAILY
     Route: 048
  5. SYNTHROID [Suspect]
     Indication: AUTOIMMUNE THYROIDITIS
     Dosage: DOSE CHANGED ANYWHERE BETWEEN 150MCG TO 200MCG, ADJUSTED TO THYROID LEVELS.
     Route: 048
     Dates: start: 19670101, end: 20090401
  6. MULTI-VITAMIN [Concomitant]
     Indication: ROUTINE HEALTH MAINTENANCE
  7. COMPLETE VITAMIN B SUPPLEMENT [Concomitant]
     Indication: PRODUCT USED FOR UNKNOWN INDICATION

REACTIONS (18)
  - BONE DECALCIFICATION [None]
  - ARTHRALGIA [None]
  - ALOPECIA [None]
  - SKIN EXFOLIATION [None]
  - DRUG INEFFECTIVE [None]
  - SWELLING FACE [None]
  - BURSITIS [None]
  - MADAROSIS [None]
  - LACRIMATION INCREASED [None]
  - WEIGHT INCREASED [None]
  - VISUAL ACUITY REDUCED [None]
  - DYSPHONIA [None]
  - EYE IRRITATION [None]
  - NAIL RIDGING [None]
  - MYALGIA [None]
  - PARAESTHESIA [None]
  - CATARACT [None]
  - BODY HEIGHT DECREASED [None]
